FAERS Safety Report 21366201 (Version 1)
Quarter: 2022Q3

REPORT INFORMATION
  Report Type: Report from Study
  Country: FR (occurrence: FR)
  Receive Date: 20220922
  Receipt Date: 20220922
  Transmission Date: 20221027
  Serious: Yes (Death)
  Sender: FDA-Public Use
  Company Number: FR-BRISTOL-MYERS SQUIBB COMPANY-2022-109903

PATIENT
  Age: 74 Year
  Sex: Male

DRUGS (1)
  1. NIVOLUMAB [Suspect]
     Active Substance: NIVOLUMAB
     Indication: Renal cell carcinoma
     Route: 065
     Dates: end: 20200402

REACTIONS (4)
  - Fall [Unknown]
  - Head injury [Unknown]
  - Vomiting [Unknown]
  - Lung disorder [Fatal]

NARRATIVE: CASE EVENT DATE: 20220802
